FAERS Safety Report 25489028 (Version 2)
Quarter: 2025Q3

REPORT INFORMATION
  Report Type: Report from Study
  Country: GB (occurrence: GB)
  Receive Date: 20250627
  Receipt Date: 20250714
  Transmission Date: 20251020
  Serious: Yes (Hospitalization)
  Sender: PFIZER
  Company Number: GB-PFIZER INC-PV202500072934

PATIENT
  Age: 23 Year
  Sex: Male
  Weight: 101 kg

DRUGS (4)
  1. LORLATINIB [Suspect]
     Active Substance: LORLATINIB
     Indication: Neuroblastoma
     Dosage: 150 MG, 1X/DAY (OD); FILM COATED TABLET
     Route: 048
     Dates: start: 20210111, end: 20250615
  2. ROSUVASTATIN [Concomitant]
     Active Substance: ROSUVASTATIN
     Indication: Hypercholesterolaemia
     Dosage: 20 MG, OD
     Route: 048
     Dates: start: 20210303
  3. TOPOTECAN [Concomitant]
     Active Substance: TOPOTECAN HYDROCHLORIDE
     Indication: Chemotherapy
     Dosage: 1.5 MG, QD; FIRST CYCLE OF CHEMOTHERAPY
     Route: 042
     Dates: start: 20250527, end: 20250531
  4. CYCLOPHOSPHAMIDE [Concomitant]
     Active Substance: CYCLOPHOSPHAMIDE
     Indication: Chemotherapy
     Dosage: 500 MG, QD, FIRST CYCLE OF CHEMOTHERAPY
     Route: 042
     Dates: start: 20250527, end: 20250531

REACTIONS (13)
  - Blood lactic acid increased [Recovered/Resolved]
  - Alanine aminotransferase increased [Recovering/Resolving]
  - Hepatic pain [Recovered/Resolved]
  - Hepatitis [Recovering/Resolving]
  - Abdominal pain upper [Recovered/Resolved]
  - Liver function test abnormal [Recovering/Resolving]
  - Cardiac failure [Recovering/Resolving]
  - Pericardial effusion [Recovering/Resolving]
  - Ascites [Recovering/Resolving]
  - Arthropod bite [Recovered/Resolved]
  - Phlebitis [Unknown]
  - Gallbladder disorder [Unknown]
  - Infection [Unknown]

NARRATIVE: CASE EVENT DATE: 20250606
